FAERS Safety Report 18485909 (Version 1)
Quarter: 2020Q4

REPORT INFORMATION
  Report Type: Spontaneous
  Country: CA (occurrence: CA)
  Receive Date: 20201110
  Receipt Date: 20201110
  Transmission Date: 20210114
  Serious: Yes (Hospitalization, Other)
  Sender: FDA-Public Use
  Company Number: CA-LUPIN PHARMACEUTICALS INC.-2020-08395

PATIENT
  Age: 48 Year
  Sex: Female
  Weight: 102 kg

DRUGS (3)
  1. AMLODIPINE [Suspect]
     Active Substance: AMLODIPINE BESYLATE
     Indication: PRODUCT USED FOR UNKNOWN INDICATION
     Dosage: 252 MILLIGRAM, SINGLE
     Route: 048
  2. PERINDOPRIL [Suspect]
     Active Substance: PERINDOPRIL
     Indication: PRODUCT USED FOR UNKNOWN INDICATION
     Dosage: 180 MILLIGRAM, SINGLE
     Route: 048
  3. NALOXONE [Concomitant]
     Active Substance: NALOXONE
     Indication: VASOPLEGIA SYNDROME
     Dosage: UNK (200MICROG ALIQUOTS EVERY THREE TO FIVE MINUTES TO A TOTAL DOSE OF 1.6MG FOR VASOPLEGIA; TOTAL C
     Route: 042

REACTIONS (4)
  - Hypoxia [Recovered/Resolved]
  - Insulin resistance [Recovering/Resolving]
  - Overdose [Unknown]
  - Toxicity to various agents [Recovered/Resolved]
